FAERS Safety Report 9668359 (Version 2)
Quarter: 2013Q4

REPORT INFORMATION
  Report Type: Spontaneous
  Country: US (occurrence: US)
  Receive Date: 20131104
  Receipt Date: 20131211
  Transmission Date: 20140711
  Serious: Yes (Hospitalization, Other)
  Sender: FDA-Public Use
  Company Number: US-GILEAD-2013-0086832

PATIENT
  Sex: Female

DRUGS (4)
  1. LETAIRIS [Suspect]
     Indication: PULMONARY HYPERTENSION
     Dosage: 5 MG, QD
     Route: 048
     Dates: start: 20130420
  2. LETAIRIS [Suspect]
     Indication: STREPTOCOCCAL INFECTION
  3. LETAIRIS [Suspect]
     Indication: RHINOVIRUS INFECTION
  4. REVATIO [Concomitant]

REACTIONS (6)
  - Pulmonary arterial hypertension [Unknown]
  - Syncope [Unknown]
  - Streptococcal infection [Unknown]
  - Rhinovirus infection [Unknown]
  - Chest discomfort [Unknown]
  - Fatigue [Unknown]
